FAERS Safety Report 4757855-0 (Version None)
Quarter: 2005Q3

REPORT INFORMATION
  Report Type: 
  Country: None (occurrence: None)
  Receive Date: 20050826
  Receipt Date: 20050711
  Transmission Date: 20060218
  Serious: No
  Sender: FDA-Public Use
  Company Number: WAES 0507USA01353

PATIENT
  Age: 80 Year
  Sex: Female

DRUGS (11)
  1. ZETIA [Suspect]
     Indication: HYPERCHOLESTEROLAEMIA
     Dosage: 10 MG/DAILY/PO
     Route: 048
     Dates: start: 20050708, end: 20050711
  2. ADVAIR DISKUS 100/50 [Concomitant]
  3. AMARYL [Concomitant]
  4. AMBIEN [Concomitant]
  5. GLUCOPHAGE [Concomitant]
  6. RHINOCORT [Concomitant]
  7. SYNTHROID [Concomitant]
  8. XANAX [Concomitant]
  9. ZOLOFT [Concomitant]
  10. DIGOXIN [Concomitant]
  11. PREDNISONE [Concomitant]

REACTIONS (1)
  - ABDOMINAL DISTENSION [None]
